FAERS Safety Report 9080683 (Version 2)
Quarter: 2013Q1

REPORT INFORMATION
  Report Type: Spontaneous
  Country: JP (occurrence: JP)
  Receive Date: 20130218
  Receipt Date: 20130320
  Transmission Date: 20140127
  Serious: Yes (Hospitalization)
  Sender: FDA-Public Use
  Company Number: JP-BAYER-2013-018346

PATIENT
  Age: 68 Year
  Sex: Male
  Weight: 76 kg

DRUGS (8)
  1. NEXAVAR [Suspect]
     Indication: HEPATOCELLULAR CARCINOMA
     Dosage: DAILY DOSE 800 MG
     Route: 048
     Dates: start: 20130130, end: 20130205
  2. LASIX [Concomitant]
     Indication: HEPATIC CIRRHOSIS
     Dosage: DAILY DOSE 40 MG
     Route: 048
  3. ALDACTONE A [Concomitant]
     Indication: HEPATIC CIRRHOSIS
     Dosage: DAILY DOSE 25 MG
     Route: 048
  4. LIVACT [Concomitant]
     Indication: HEPATIC CIRRHOSIS
     Dosage: DAILY DOSE 12.45 G
     Route: 048
  5. URSO [Concomitant]
     Indication: HEPATIC CIRRHOSIS
     Dosage: DAILY DOSE 600 MG
     Route: 048
  6. PROMAC [Concomitant]
     Indication: HEPATIC CIRRHOSIS
     Dosage: DAILY DOSE 150 MG
     Route: 048
  7. MAGNESIUM OXIDE [Concomitant]
     Indication: CONSTIPATION
     Dosage: DAILY DOSE 1.5 G
     Route: 048
     Dates: start: 20130204, end: 20130218
  8. LENDORMIN [Concomitant]
     Indication: INSOMNIA
     Dosage: DAILY DOSE .25 MG
     Route: 048
     Dates: start: 20130130, end: 20130207

REACTIONS (3)
  - Hyperammonaemia [Recovering/Resolving]
  - Pancreatic enzymes increased [Recovered/Resolved]
  - Jaundice [Recovering/Resolving]
